FAERS Safety Report 16627252 (Version 1)
Quarter: 2019Q3

REPORT INFORMATION
  Report Type: Spontaneous
  Country: GB (occurrence: GB)
  Receive Date: 20190724
  Receipt Date: 20190724
  Transmission Date: 20191004
  Serious: Yes (Life-Threatening)
  Sender: FDA-Public Use
  Company Number: GB-ABBVIE-19K-167-2865496-00

PATIENT
  Age: 73 Year
  Sex: Male
  Weight: 47.7 kg

DRUGS (1)
  1. VENETOCLAX. [Suspect]
     Active Substance: VENETOCLAX
     Indication: CHRONIC LYMPHOCYTIC LEUKAEMIA
     Route: 048
     Dates: start: 20170405, end: 20190325

REACTIONS (5)
  - Abnormal loss of weight [Unknown]
  - Dysphonia [Unknown]
  - Hodgkin^s disease [Not Recovered/Not Resolved]
  - Dyspnoea [Unknown]
  - Haemoglobin decreased [Unknown]

NARRATIVE: CASE EVENT DATE: 201903
